FAERS Safety Report 24246686 (Version 7)
Quarter: 2024Q4

REPORT INFORMATION
  Report Type: Report from Study
  Country: PT (occurrence: PT)
  Receive Date: 20240825
  Receipt Date: 20241213
  Transmission Date: 20250115
  Serious: Yes (Other)
  Sender: ABBVIE
  Company Number: PT-ABBVIE-5885823

PATIENT
  Age: 80 Year
  Sex: Male

DRUGS (17)
  1. CARBIDOPA\LEVODOPA [Suspect]
     Active Substance: CARBIDOPA\LEVODOPA
     Indication: Parkinson^s disease
     Dosage: 20 MG + 5 MG?FREQUENCY TEXT: MORN:16.5CC;MAIN:6.4CC/H;EXTRA:6CC
     Route: 050
     Dates: start: 2024
  2. CARBIDOPA\LEVODOPA [Suspect]
     Active Substance: CARBIDOPA\LEVODOPA
     Dosage: 20 MG + 5 MG?FREQUENCY TEXT: MORN:7.3CC;MAIN:4.3CC/H;EXTRA:1CC
     Route: 050
     Dates: start: 20230621
  3. EDOXABAN TOSYLATE [Concomitant]
     Active Substance: EDOXABAN TOSYLATE
     Indication: Product used for unknown indication
     Dosage: 1 TABLET?FORM STRENGTH: 60 MG?START DATE TEXT: BEFORE DUODOPA
  4. FLUOXETINE [Concomitant]
     Active Substance: FLUOXETINE HYDROCHLORIDE
     Indication: Product used for unknown indication
     Dosage: FORM STRENGTH: 20 MG?FREQUENCY TEXT: AT BREAKFAST, EVERY OTHER DAY?START DATE TEXT: BEFORE DUODOPA
  5. MEMANTINE [Concomitant]
     Active Substance: MEMANTINE
     Indication: Product used for unknown indication
     Dosage: 2 TABLET, FORM STRENGTH: 10 MG, FREQUENCY TEXT: AT BREAKFAST AND AT DINNER?START DATE TEXT: BEFOR...
  6. RIVOTRIL [Concomitant]
     Active Substance: CLONAZEPAM
     Indication: Product used for unknown indication
     Dosage: 1 TABLET?FORM STRENGTH: 0.5 MG?FREQUENCY TEXT: AT BEDTIME?START DATE TEXT: BEFORE DUODOPA
  7. RAMIPRIL [Concomitant]
     Active Substance: RAMIPRIL
     Indication: Product used for unknown indication
     Dosage: 1 TABLET
  8. RAMIPRIL [Concomitant]
     Active Substance: RAMIPRIL
     Indication: Product used for unknown indication
     Dosage: 1 TABLET?FORM STRENGTH: 5 MG?FREQUENCY TEXT: AT BREAKFAST?START DATE TEXT: BEFORE DUODOPA
  9. DUTASTERIDE\TAMSULOSIN [Concomitant]
     Active Substance: DUTASTERIDE\TAMSULOSIN
     Indication: Product used for unknown indication
     Dosage: 5 MG + 4 MG?FREQUENCY TEXT: 1 TABLET AT LUNCH?START DATE TEXT: BEFORE DUODOPA
  10. FOLIC ACID [Concomitant]
     Active Substance: FOLIC ACID
     Indication: Product used for unknown indication
     Dosage: FORM STRENGTH: 5 MILLIGRAM, FREQUENCY TEXT: 1 TABLET AT LUNCH ON SATURDAYS + SUNDAYS, START DATE ...
  11. SINEMET CR [Concomitant]
     Active Substance: CARBIDOPA\LEVODOPA
     Indication: Product used for unknown indication
     Dosage: 1 TABLET?FREQUENCY TEXT: AT BEDTIME?START DATE TEXT: BEFORE DUODOPA?200/50
  12. SIMVASTATIN [Concomitant]
     Active Substance: SIMVASTATIN
     Indication: Product used for unknown indication
     Dosage: 1 TABLET?FORM STRENGTH: 20 MG?FREQUENCY TEXT: AT BEDTIME?START DATE TEXT: BEFORE DUODOPA
  13. NEUROBION [Concomitant]
     Active Substance: CYANOCOBALAMIN\PYRIDOXINE\THIAMINE
     Indication: Product used for unknown indication
     Dosage: 1 TABLET?START DATE TEXT: BEFORE DUODOPA
  14. RIVASTIGMINE [Concomitant]
     Active Substance: RIVASTIGMINE
     Indication: Product used for unknown indication
     Dosage: 13,3 MG/24H?FREQUENCY TEXT: 1 PATCH DAILY?START DATE TEXT: BEFORE DUODOPA
     Route: 062
  15. AMANTADINE HYDROCHLORIDE [Concomitant]
     Active Substance: AMANTADINE HYDROCHLORIDE
     Indication: Product used for unknown indication
     Dosage: 1 TABLET?FORM STRENGTH: 100MG?FREQUENCY TEXT: AT BREAKFAST?START DATE TEXT: BEFORE DUODOPA?STOP D...
  16. MIRABEGRON [Concomitant]
     Active Substance: MIRABEGRON
     Indication: Product used for unknown indication
     Dosage: 1 CAPSULE?FORM STRENGTH: 25 MG?FREQUENCY TEXT: AT BREAKFAST?START DATE TEXT: BEFORE DUODOPA
  17. PANTOPRAZOLE [Concomitant]
     Active Substance: PANTOPRAZOLE
     Indication: Product used for unknown indication
     Dosage: 1 TABLET?FORM STRENGTH: 20 MG?FREQUENCY TEXT: AT FASTING?START DATE TEXT: BEFORE DUODOPA

REACTIONS (11)
  - Urinary tract infection [Recovered/Resolved]
  - Irritability [Not Recovered/Not Resolved]
  - Abnormal behaviour [Not Recovered/Not Resolved]
  - Memory impairment [Not Recovered/Not Resolved]
  - Fatigue [Not Recovered/Not Resolved]
  - On and off phenomenon [Recovered/Resolved]
  - Anxiety [Not Recovered/Not Resolved]
  - Dyskinesia [Not Recovered/Not Resolved]
  - Dyspnoea [Recovering/Resolving]
  - Hypotension [Recovered/Resolved]
  - Heart rate decreased [Recovered/Resolved]

NARRATIVE: CASE EVENT DATE: 20240801
